FAERS Safety Report 21039085 (Version 2)
Quarter: 2022Q3

REPORT INFORMATION
  Report Type: Spontaneous
  Country: AT (occurrence: AT)
  Receive Date: 20220704
  Receipt Date: 20220824
  Transmission Date: 20221026
  Serious: No
  Sender: FDA-Public Use
  Company Number: AT-SANOFI-01168555

PATIENT
  Age: 34 Year
  Sex: Female

DRUGS (4)
  1. LOVENOX [Suspect]
     Active Substance: ENOXAPARIN SODIUM
     Dosage: 4000UNITS
  2. DUPHASTON [Concomitant]
     Active Substance: DYDROGESTERONE
  3. MAGNESIUM [Concomitant]
     Active Substance: MAGNESIUM
  4. LACTASE [Concomitant]
     Active Substance: LACTASE

REACTIONS (1)
  - Maternal exposure before pregnancy [Unknown]
